FAERS Safety Report 7456306-5 (Version None)
Quarter: 2011Q2

REPORT INFORMATION
  Report Type: 
  Country: None (occurrence: None)
  Receive Date: 20110426
  Receipt Date: 20110411
  Transmission Date: 20111010
  Serious: Yes (Other)
  Sender: FDA-Public Use
  Company Number: 2011P1006033

PATIENT
  Age: 60 Year
  Sex: Female

DRUGS (5)
  1. THYROXINE [Concomitant]
  2. FENTANYL [Suspect]
     Indication: ANAESTHESIA
     Dosage: 2545 MCG;X1;
  3. PROPOFOL [Concomitant]
  4. PAROXETINE (NO PREF. NAME) [Suspect]
     Indication: DEPRESSION
  5. ISOFLURANE IN OXYGEN AND AIR [Concomitant]

REACTIONS (4)
  - OPERATIVE HAEMORRHAGE [None]
  - SEROTONIN SYNDROME [None]
  - DRUG INTERACTION [None]
  - PLATELET COUNT DECREASED [None]
